FAERS Safety Report 7867301-6 (Version None)
Quarter: 2011Q4

REPORT INFORMATION
  Report Type: 
  Country: None (occurrence: None)
  Receive Date: 20111028
  Receipt Date: 20111024
  Transmission Date: 20120403
  Serious: Yes (Other)
  Sender: FDA-Public Use
  Company Number: CA-ABBOTT-11P-028-0867938-00

PATIENT
  Sex: Male
  Weight: 59.928 kg

DRUGS (17)
  1. DOCUSATE SODIUM [Concomitant]
     Indication: GASTROINTESTINAL DISORDER
  2. RATIO-FENTANYL [Concomitant]
     Indication: CARDIAC DISORDER
     Dosage: 1 PATCH EVERY 3 DAYS
  3. CENTRUM REG [Concomitant]
     Indication: PRODUCT USED FOR UNKNOWN INDICATION
  4. PMS SENNOSIDE [Concomitant]
     Indication: GASTROINTESTINAL DISORDER
     Dosage: AT BEDTIME
  5. RATIO-SALBUTAMOL [Concomitant]
     Indication: RESPIRATORY DISORDER
     Dosage: 12.5 MG / 2.5 ML QID
  6. TIAZAC [Concomitant]
     Indication: PRODUCT USED FOR UNKNOWN INDICATION
  7. SEROQUEL [Concomitant]
     Indication: PRODUCT USED FOR UNKNOWN INDICATION
  8. ACETAMINOPHEN [Concomitant]
     Indication: CARDIAC DISORDER
  9. APO-SALVENT CFC [Concomitant]
     Indication: RESPIRATORY DISORDER
  10. LUPRON DEPOT [Suspect]
     Indication: PROSTATE CANCER
     Dates: start: 20100920
  11. CALCIUM +VIT D [Concomitant]
     Indication: PRODUCT USED FOR UNKNOWN INDICATION
     Dosage: DAILY DOSE: 1000MG/800IU UNIT DOSE: 500MG/400IU
  12. VITAMIN B1 TAB [Concomitant]
     Indication: PRODUCT USED FOR UNKNOWN INDICATION
  13. JAMP-ASA [Concomitant]
     Indication: CARDIAC DISORDER
  14. NAPROXEN [Concomitant]
     Indication: MUSCULOSKELETAL PAIN
  15. PANTOPRAZOLE [Concomitant]
     Indication: PRODUCT USED FOR UNKNOWN INDICATION
  16. PLAVIX [Concomitant]
     Indication: CEREBROVASCULAR ACCIDENT
  17. PRO-QUETIAPINE [Concomitant]
     Indication: SLEEP DISORDER
     Dosage: 1-2 TABLETS AS REQUIRED OVER NIGHT

REACTIONS (4)
  - INSOMNIA [None]
  - AGITATION [None]
  - CEREBROVASCULAR ACCIDENT [None]
  - ANXIETY [None]
